FAERS Safety Report 7949331-9 (Version None)
Quarter: 2011Q4

REPORT INFORMATION
  Report Type: 
  Country: None (occurrence: None)
  Receive Date: 20111130
  Receipt Date: 20111123
  Transmission Date: 20120403
  Serious: Yes (Hospitalization)
  Sender: FDA-Public Use
  Company Number: US-GILEAD-2011-0046781

PATIENT
  Sex: Female

DRUGS (4)
  1. LETAIRIS [Suspect]
     Indication: HEART DISEASE CONGENITAL
  2. LETAIRIS [Suspect]
     Indication: TURNER'S SYNDROME
  3. LETAIRIS [Suspect]
     Indication: PULMONARY HYPERTENSION
     Dosage: 5 MG, UNK
     Route: 048
     Dates: start: 20090620
  4. REMODULIN [Concomitant]

REACTIONS (1)
  - BLADDER DISORDER [None]
